FAERS Safety Report 13264316 (Version 2)
Quarter: 2017Q1

REPORT INFORMATION
  Report Type: Spontaneous
  Country: ES (occurrence: ES)
  Receive Date: 20170223
  Receipt Date: 20170309
  Transmission Date: 20170428
  Serious: Yes (Other)
  Sender: FDA-Public Use
  Company Number: ES-NOVOPROD-527343

PATIENT
  Age: 31 Year
  Sex: Female
  Weight: 106 kg

DRUGS (1)
  1. TRESIBA [Suspect]
     Active Substance: INSULIN DEGLUDEC
     Indication: TYPE 1 DIABETES MELLITUS
     Dosage: 32 IU
     Route: 065
     Dates: start: 201610, end: 20170112

REACTIONS (3)
  - Exposure during pregnancy [Recovered/Resolved]
  - Off label use [Recovered/Resolved]
  - Abortion [Recovered/Resolved]

NARRATIVE: CASE EVENT DATE: 20161208
